FAERS Safety Report 8127507-8 (Version None)
Quarter: 2012Q1

REPORT INFORMATION
  Report Type: 
  Country: None (occurrence: None)
  Receive Date: 20120210
  Receipt Date: 20120206
  Transmission Date: 20120608
  Serious: Yes (Hospitalization)
  Sender: FDA-Public Use
  Company Number: IL-SANOFI-AVENTIS-2012SA006924

PATIENT
  Age: 70 Year
  Sex: Female

DRUGS (3)
  1. ARAVA [Suspect]
     Indication: RHEUMATOID ARTHRITIS
     Dosage: FOR 3 WEEKS
     Route: 065
     Dates: start: 20120101
  2. PREDNISONE TAB [Concomitant]
  3. METHOTREXATE [Concomitant]
     Indication: RHEUMATOID ARTHRITIS
     Dosage: WAS TREATED FOR A WEEK WHEN ADDITIONAL TREATMENT WITH LEFLUNOMIDE WAS INITIATED.

REACTIONS (5)
  - NEUTROPHIL COUNT DECREASED [None]
  - INTESTINAL PERFORATION [None]
  - PLATELET COUNT DECREASED [None]
  - ANAEMIA [None]
  - PANCYTOPENIA [None]
